FAERS Safety Report 7050606-9 (Version None)
Quarter: 2010Q4

REPORT INFORMATION
  Report Type: 
  Country: None (occurrence: None)
  Receive Date: 20101018
  Receipt Date: 20101006
  Transmission Date: 20110411
  Serious: Yes (Other)
  Sender: FDA-Public Use
  Company Number: GB-ELI_LILLY_AND_COMPANY-GB201010001121

PATIENT
  Age: 65 Year
  Sex: Male
  Weight: 119 kg

DRUGS (10)
  1. BYETTA [Suspect]
  2. METFORMIN HCL [Concomitant]
  3. HUMALOG [Concomitant]
  4. TERBINAFINE HCL [Interacting]
     Indication: TINEA INFECTION
     Route: 048
     Dates: start: 20100624, end: 20100722
  5. BENDROFLUMETHIAZIDE [Concomitant]
  6. CETIRIZINE HCL [Concomitant]
  7. DILZEM - SLOW RELEASE [Concomitant]
  8. OMEPRAZOLE [Concomitant]
  9. PRAVASTATIN SODIUM [Concomitant]
  10. VALSARTAN [Concomitant]

REACTIONS (3)
  - DRUG INTERACTION [None]
  - HYPOGLYCAEMIA [None]
  - OFF LABEL USE [None]
